FAERS Safety Report 5699798-4 (Version None)
Quarter: 2008Q2

REPORT INFORMATION
  Report Type: 
  Country: None (occurrence: None)
  Receive Date: 20080410
  Receipt Date: 20080410
  Transmission Date: 20081010
  Serious: Yes (Life-Threatening, Hospitalization, Disabling, Other)
  Sender: FDA-Public Use
  Company Number: None

PATIENT
  Age: 48 Year
  Sex: Female
  Weight: 95.709 kg

DRUGS (1)
  1. HEPARIN [Suspect]
     Indication: THROMBOSIS
     Dosage: IV
     Route: 042
     Dates: start: 19950313, end: 19950315

REACTIONS (5)
  - ARM AMPUTATION [None]
  - DRUG HYPERSENSITIVITY [None]
  - PERIPHERAL EMBOLISM [None]
  - PHARMACEUTICAL PRODUCT COMPLAINT [None]
  - POOR PERIPHERAL CIRCULATION [None]
